FAERS Safety Report 17013289 (Version 1)
Quarter: 2019Q4

REPORT INFORMATION
  Report Type: Spontaneous
  Country: US (occurrence: US)
  Receive Date: 20191002
  Receipt Date: 20191002
  Transmission Date: 20200122
  Serious: Yes (Hospitalization)
  Sender: FDA-Public Use
  Company Number: None

PATIENT
  Age: 22 Year
  Sex: Male

DRUGS (7)
  1. SPIRIVA [Concomitant]
     Active Substance: TIOTROPIUM BROMIDE MONOHYDRATE
  2. NOVOLOG [Concomitant]
     Active Substance: INSULIN ASPART
  3. BUPROPN HCL [Concomitant]
     Active Substance: BUPROPION HYDROCHLORIDE
  4. LEVEMIR [Concomitant]
     Active Substance: INSULIN DETEMIR
  5. MONTELUKAST [Concomitant]
     Active Substance: MONTELUKAST SODIUM
  6. AZITHROMYCIN ANHYDROUS. [Concomitant]
     Active Substance: AZITHROMYCIN ANHYDROUS
  7. PULMOZYME [Suspect]
     Active Substance: DORNASE ALFA
     Indication: CYSTIC FIBROSIS
     Route: 055

REACTIONS (1)
  - Upper respiratory tract infection [None]

NARRATIVE: CASE EVENT DATE: 20190907
